FAERS Safety Report 5490427-1 (Version None)
Quarter: 2007Q4

REPORT INFORMATION
  Report Type: 
  Country: None (occurrence: None)
  Receive Date: 20071016
  Receipt Date: 20071016
  Transmission Date: 20080405
  Serious: No
  Sender: FDA-Public Use
  Company Number: None

PATIENT
  Sex: Male

DRUGS (2)
  1. DURAGESIC-100 [Suspect]
     Dosage: FILM, EXTENDED RELEASE
  2. ROXICET [Suspect]
     Dosage: VARIOUS

REACTIONS (5)
  - DRUG TOXICITY [None]
  - GASTROINTESTINAL DISORDER [None]
  - HOMICIDE [None]
  - MEDICATION ERROR [None]
  - PROCEDURAL PAIN [None]
